FAERS Safety Report 10142552 (Version 1)
Quarter: 2014Q2

REPORT INFORMATION
  Report Type: Spontaneous
  Country: US (occurrence: US)
  Receive Date: 20140430
  Receipt Date: 20140430
  Transmission Date: 20141212
  Serious: Yes (Other)
  Sender: FDA-Public Use
  Company Number: US-BRISTOL-MYERS SQUIBB COMPANY-20665584

PATIENT
  Age: 60 Year
  Sex: Female
  Weight: 56 kg

DRUGS (4)
  1. YERVOY [Suspect]
     Indication: OVARIAN CANCER
     Dosage: 10MG/KG
     Dates: start: 20140122
  2. PREDNISONE [Concomitant]
  3. SINGULAIR [Concomitant]
  4. FISH OIL [Concomitant]

REACTIONS (4)
  - Pituitary tumour [Unknown]
  - Hyponatraemia [Recovered/Resolved]
  - Thyroid disorder [Not Recovered/Not Resolved]
  - Off label use [Unknown]
